FAERS Safety Report 22117786 (Version 4)
Quarter: 2024Q4

REPORT INFORMATION
  Report Type: Report from Study
  Country: CN (occurrence: CN)
  Receive Date: 20230321
  Receipt Date: 20241017
  Transmission Date: 20250115
  Serious: Yes (Hospitalization)
  Sender: ABBVIE
  Company Number: CN-ABBVIE-4696924

PATIENT
  Age: 20 Year
  Sex: Female
  Weight: 50 kg

DRUGS (11)
  1. HUMIRA [Suspect]
     Active Substance: ADALIMUMAB
     Indication: Crohn^s disease
     Dosage: FORM STRENGTH 40 MILLIGRAM
     Route: 058
     Dates: start: 20230206, end: 20230720
  2. HUMIRA [Suspect]
     Active Substance: ADALIMUMAB
     Dosage: FORM STRENGTH 40 MILLIGRAM
     Route: 058
     Dates: start: 20230721, end: 20230807
  3. HUMIRA [Suspect]
     Active Substance: ADALIMUMAB
     Indication: Crohn^s disease
     Dosage: FORM STRENGTH 40 MILLIGRAM
     Route: 058
     Dates: start: 20220901, end: 20230206
  4. HUMIRA [Suspect]
     Active Substance: ADALIMUMAB
     Dosage: FORM STRENGTH 40 MILLIGRAM
     Route: 058
     Dates: start: 20220817, end: 20220817
  5. HUMIRA [Suspect]
     Active Substance: ADALIMUMAB
     Dosage: FORM STRENGTH 40 MILLIGRAM
     Route: 058
     Dates: start: 20220803, end: 20220803
  6. CALCIUM CARBONATE AND VITAMIN D3 TABLETS [Concomitant]
     Indication: Mineral supplementation
     Dosage: 1 TABLET
     Route: 048
     Dates: start: 20220728, end: 20220831
  7. METHYLPREDNISOLONE [Concomitant]
     Active Substance: METHYLPREDNISOLONE
     Indication: Crohn^s disease
     Dosage: 2 TABLET
     Route: 048
     Dates: start: 20220812, end: 20220820
  8. METHYLPREDNISOLONE [Concomitant]
     Active Substance: METHYLPREDNISOLONE
     Indication: Crohn^s disease
     Dosage: 4 TABLET
     Route: 048
     Dates: start: 20220728, end: 20220804
  9. METHYLPREDNISOLONE [Concomitant]
     Active Substance: METHYLPREDNISOLONE
     Indication: Crohn^s disease
     Dosage: 1 TABLET
     Route: 048
     Dates: start: 20220821, end: 20220831
  10. METHYLPREDNISOLONE [Concomitant]
     Active Substance: METHYLPREDNISOLONE
     Indication: Crohn^s disease
     Dosage: 3 TABLET
     Route: 048
     Dates: start: 20220805, end: 20220812
  11. ENTERAL NUTRITIONAL POWDER [Concomitant]
     Indication: Enteral nutrition
     Dosage: FREQUENCY TEXT: EVERY OTHER DAY
     Route: 048
     Dates: start: 20220713

REACTIONS (2)
  - Intestinal obstruction [Recovered/Resolved]
  - COVID-19 [Recovered/Resolved]

NARRATIVE: CASE EVENT DATE: 20230311
